FAERS Safety Report 21711128 (Version 2)
Quarter: 2023Q1

REPORT INFORMATION
  Report Type: Spontaneous
  Country: JP (occurrence: JP)
  Receive Date: 20221212
  Receipt Date: 20230209
  Transmission Date: 20230417
  Serious: Yes (Other)
  Sender: FDA-Public Use
  Company Number: JP-HBP-2022JP027780

PATIENT
  Age: 69 Year
  Sex: Female

DRUGS (6)
  1. PALONOSETRON HYDROCHLORIDE [Suspect]
     Active Substance: PALONOSETRON HYDROCHLORIDE
     Indication: Prophylaxis of nausea and vomiting
     Dosage: 0.75 MG, QD
     Route: 041
     Dates: start: 20221005
  2. FOSNETUPITANT CHLORIDE HYDROCHLORIDE [Suspect]
     Active Substance: FOSNETUPITANT CHLORIDE HYDROCHLORIDE
     Indication: Prophylaxis of nausea and vomiting
     Dosage: 235 MG, QD
     Route: 041
     Dates: start: 20221005
  3. DECADRON (DEXAMETHASONE SODIUM PHOSPHATE) [Concomitant]
     Active Substance: DEXAMETHASONE SODIUM PHOSPHATE
     Indication: Prophylaxis of nausea and vomiting
     Dosage: 3.3 MILLIGRAM, QD
     Route: 041
     Dates: start: 20221005
  4. XELODA [Concomitant]
     Active Substance: CAPECITABINE
     Indication: Colon cancer metastatic
     Dosage: UNK, TWO WEEKS ON AND ONE WEEK OFF
     Route: 048
  5. OXALIPLATIN [Concomitant]
     Active Substance: OXALIPLATIN
     Indication: Colon cancer metastatic
     Dosage: UNK, Q3WK
     Route: 041
  6. BEVACIZUMAB [Concomitant]
     Active Substance: BEVACIZUMAB
     Indication: Colon cancer metastatic
     Dosage: UNK, Q3WK
     Route: 041

REACTIONS (3)
  - Dyspnoea [Recovered/Resolved]
  - Back pain [Recovered/Resolved]
  - Flushing [Recovered/Resolved]

NARRATIVE: CASE EVENT DATE: 20221005
